FAERS Safety Report 5114374-X (Version None)
Quarter: 2006Q3

REPORT INFORMATION
  Report Type: 
  Country: None (occurrence: None)
  Receive Date: 20060731
  Receipt Date: 20060605
  Transmission Date: 20061208
  Serious: No
  Sender: FDA-Public Use
  Company Number: 2006PV015071

PATIENT
  Age: 66 Year
  Sex: Female
  Weight: 104.3273 kg

DRUGS (1)
  1. BYETTA [Suspect]
     Indication: INSULIN RESISTANT DIABETES
     Dosage: 5 MCG;BID;SC
     Route: 058
     Dates: start: 20060427

REACTIONS (5)
  - ANOREXIA [None]
  - ERUCTATION [None]
  - INJECTION SITE RASH [None]
  - NAUSEA [None]
  - WEIGHT DECREASED [None]
